FAERS Safety Report 7247768-7 (Version None)
Quarter: 2011Q1

REPORT INFORMATION
  Report Type: 
  Country: None (occurrence: None)
  Receive Date: 20110127
  Receipt Date: 20110117
  Transmission Date: 20110831
  Serious: Yes (Life-Threatening, Hospitalization)
  Sender: FDA-Public Use
  Company Number: FR-KINGPHARMUSA00001-K201100074

PATIENT
  Age: 78 Year
  Sex: Female

DRUGS (9)
  1. RAMILICH COMP [Suspect]
     Indication: HYPERTENSION
     Dosage: 5/25 MG, QD
     Route: 048
     Dates: start: 20100727, end: 20101011
  2. ACETYLSALICYLIC ACID SRT [Concomitant]
     Dosage: 100 MG, UNK
     Dates: start: 20100727
  3. TORSEMIDE [Suspect]
     Dosage: 10 MG, QD
     Route: 048
     Dates: start: 20100727, end: 20101011
  4. ALTACE [Suspect]
     Indication: HYPERTENSION
     Dosage: 5 MG, QD
     Route: 048
     Dates: start: 20100727, end: 20101011
  5. DRONEDARONE [Suspect]
     Indication: ATRIAL FIBRILLATION
     Dosage: 400 MG, BID
     Route: 048
     Dates: start: 20100727, end: 20101011
  6. IBUFLAM [Suspect]
     Indication: PAIN
     Dosage: 800 MG, QOD
     Route: 048
     Dates: start: 20100705, end: 20111011
  7. EXCEDRIN (MIGRAINE) [Concomitant]
     Dosage: 1 DF, UNK
     Dates: start: 20080701
  8. METOPROLOL SUCCINATE [Concomitant]
     Dosage: 190 MG, QD
     Dates: start: 20100727
  9. CLEXANE [Concomitant]
     Dosage: 8000 IU, QD
     Dates: start: 20100727, end: 20101029

REACTIONS (4)
  - RENAL FAILURE ACUTE [None]
  - DEHYDRATION [None]
  - BLOOD UREA INCREASED [None]
  - BLOOD CREATININE INCREASED [None]
